FAERS Safety Report 5500287-8 (Version None)
Quarter: 2007Q4

REPORT INFORMATION
  Report Type: 
  Country: None (occurrence: None)
  Receive Date: 20071029
  Receipt Date: 20071018
  Transmission Date: 20080405
  Serious: Yes (Other)
  Sender: FDA-Public Use
  Company Number: US-JNJFOC-20071005217

PATIENT
  Sex: Female
  Weight: 60.33 kg

DRUGS (10)
  1. REMICADE [Suspect]
     Dosage: RECEIVED 1 DOSE TO DATE
     Route: 042
  2. REMICADE [Suspect]
     Route: 042
  3. REMICADE [Suspect]
     Indication: RHEUMATOID ARTHRITIS
     Route: 042
  4. MTX [Concomitant]
  5. SINGULAIR [Concomitant]
  6. PREVACID [Concomitant]
     Indication: GASTRIC DISORDER
  7. LEVOXYL [Concomitant]
     Indication: THYROID DISORDER
  8. ASMANEX TWISTHALER [Concomitant]
  9. SERAVENT [Concomitant]
  10. FOLIC ACID [Concomitant]

REACTIONS (2)
  - ANKLE FRACTURE [None]
  - SINUSITIS [None]
